FAERS Safety Report 12798008 (Version 2)
Quarter: 2016Q3

REPORT INFORMATION
  Report Type: Spontaneous
  Country: GB (occurrence: GB)
  Receive Date: 20160930
  Receipt Date: 20160930
  Transmission Date: 20161109
  Serious: Yes (Disabling)
  Sender: FDA-Public Use
  Company Number: GB-CIPLA LTD.-2016GB19026

PATIENT

DRUGS (7)
  1. LEVOTHYROXINE. [Concomitant]
     Active Substance: LEVOTHYROXINE
     Dosage: 1 DF, QD
     Route: 065
     Dates: start: 20160718
  2. PIZOTIFEN [Concomitant]
     Active Substance: PIZOTYLINE
     Dosage: UNK, USE AS DIRECTED
     Route: 065
     Dates: start: 20160802
  3. RIZATRIPTAN. [Concomitant]
     Active Substance: RIZATRIPTAN
     Dosage: 1 DF, PRN, CAN TAKE ANOTHER DOSE A...
     Route: 065
     Dates: start: 20160523, end: 20160622
  4. ASPIRIN. [Concomitant]
     Active Substance: ASPIRIN
     Dosage: 900 MG, IMMEDIATELY AT THE START OF M...
     Route: 065
     Dates: start: 20160705, end: 20160802
  5. TOPIRAMATE. [Suspect]
     Active Substance: TOPIRAMATE
     Dosage: UNK
     Route: 065
     Dates: start: 20160802
  6. AMITRIPTYLINE HYDROCHLORIDE. [Concomitant]
     Active Substance: AMITRIPTYLINE HYDROCHLORIDE
     Dosage: 1 DF, QD, AT NIGHT
     Route: 065
     Dates: start: 20160524, end: 20160628
  7. PROCHLORPERAZINE. [Concomitant]
     Active Substance: PROCHLORPERAZINE
     Dosage: UNK, 1-2 UPTO 2 TIMES A DAY.
     Route: 065
     Dates: start: 20160802

REACTIONS (3)
  - Balance disorder [Unknown]
  - Nausea [Unknown]
  - Dizziness [Unknown]

NARRATIVE: CASE EVENT DATE: 20160802
